FAERS Safety Report 21373795 (Version 1)
Quarter: 2022Q3

REPORT INFORMATION
  Report Type: Spontaneous
  Country: FR (occurrence: FR)
  Receive Date: 20220926
  Receipt Date: 20220926
  Transmission Date: 20221026
  Serious: Yes (Hospitalization, Disabling)
  Sender: FDA-Public Use
  Company Number: FR-STRIDES ARCOLAB LIMITED-2022SP012090

PATIENT
  Age: 58 Year
  Sex: Male

DRUGS (3)
  1. COLCHICINE [Interacting]
     Active Substance: COLCHICINE
     Indication: Pericarditis
     Dosage: 4 MILLIGRAM, PER DAY
     Route: 065
  2. ATORVASTATIN\EZETIMIBE [Interacting]
     Active Substance: ATORVASTATIN\EZETIMIBE
     Indication: Coronary artery disease
     Dosage: UNK
     Route: 065
  3. ASPIRIN [Concomitant]
     Active Substance: ASPIRIN
     Indication: Pericarditis
     Dosage: 4 GRAM, PER DAY
     Route: 065

REACTIONS (4)
  - Musculoskeletal toxicity [Recovered/Resolved]
  - Drug interaction [Unknown]
  - Overdose [Unknown]
  - Off label use [Unknown]
